FAERS Safety Report 7072490-X (Version None)
Quarter: 2010Q4

REPORT INFORMATION
  Report Type: 
  Country: None (occurrence: None)
  Receive Date: 20101029
  Receipt Date: 20100203
  Transmission Date: 20110411
  Serious: No
  Sender: FDA-Public Use
  Company Number: A0842811A

PATIENT
  Age: 85 Year
  Sex: Female

DRUGS (11)
  1. ADVAIR DISKUS 100/50 [Suspect]
     Indication: ASTHMA
     Dosage: 1PUFF TWICE PER DAY
     Route: 055
  2. NAMENDA [Concomitant]
  3. DEPAKOTE [Concomitant]
  4. CENTRUM SILVER [Concomitant]
  5. VITAMIN D [Concomitant]
  6. SINGULAIR [Concomitant]
  7. ARICEPT [Concomitant]
  8. PAROXETINE HCL [Concomitant]
  9. ATIVAN [Concomitant]
  10. PREDNISONE [Concomitant]
  11. METAMUCIL-2 [Concomitant]

REACTIONS (4)
  - ACCIDENTAL OVERDOSE [None]
  - COUGH [None]
  - DIZZINESS POSTURAL [None]
  - WHEEZING [None]
